FAERS Safety Report 14924704 (Version 1)
Quarter: 2018Q2

REPORT INFORMATION
  Report Type: Spontaneous
  Country: PL (occurrence: PL)
  Receive Date: 20180522
  Receipt Date: 20180522
  Transmission Date: 20180711
  Serious: Yes (Life-Threatening, Hospitalization)
  Sender: FDA-Public Use
  Company Number: PL-FRESENIUS KABI-FK201806024

PATIENT
  Age: 6 Year
  Sex: Male

DRUGS (2)
  1. PARACETAMOL (MANUFACTURER UNKNOWN) [Suspect]
     Active Substance: ACETAMINOPHEN
     Indication: PRODUCT USED FOR UNKNOWN INDICATION
     Route: 042
     Dates: start: 20140117, end: 20140117
  2. CEFUROXIM FRESENIUS [Suspect]
     Active Substance: CEFUROXIME
     Indication: PHARYNGITIS
     Route: 042
     Dates: start: 20140117, end: 20140117

REACTIONS (10)
  - Anaphylactic shock [Recovered/Resolved]
  - Hypotonia [Recovered/Resolved]
  - Cyanosis central [Recovered/Resolved]
  - Bronchial obstruction [Recovered/Resolved]
  - Tachycardia [Recovered/Resolved]
  - Unresponsive to stimuli [Recovered/Resolved]
  - Soft tissue swelling [Recovered/Resolved]
  - Blood pressure decreased [Recovered/Resolved]
  - Dyspnoea [Recovered/Resolved]
  - Abnormal faeces [Recovered/Resolved]

NARRATIVE: CASE EVENT DATE: 20140117
